FAERS Safety Report 4489596-1 (Version None)
Quarter: 2004Q4

REPORT INFORMATION
  Report Type: 
  Country: None (occurrence: None)
  Receive Date: 20041101
  Receipt Date: 20040713
  Transmission Date: 20050328
  Serious: Yes (Hospitalization)
  Sender: FDA-Public Use
  Company Number: PHHO2004FR09926

PATIENT
  Age: 50 Year
  Sex: Female
  Weight: 58 kg

DRUGS (6)
  1. NEORAL [Suspect]
     Indication: LIVER TRANSPLANT
     Dosage: 75 MG, BID
     Route: 048
     Dates: start: 20040413, end: 20040613
  2. NEORAL [Suspect]
     Dosage: 200 MG/DAILY
     Route: 048
     Dates: start: 20040614, end: 20040623
  3. NEORAL [Suspect]
     Dosage: 225 MG/DAILY
     Dates: start: 20040624, end: 20040627
  4. NEORAL [Suspect]
     Dosage: 250 MG/DAILY
     Dates: start: 20040628, end: 20040704
  5. NEORAL [Suspect]
     Dosage: 275 MG/DAILY
     Dates: start: 20040705, end: 20040808
  6. NEORAL [Suspect]
     Dosage: 225 MG/DAILY
     Dates: start: 20040809

REACTIONS (4)
  - BILIARY CIRRHOSIS PRIMARY [None]
  - DRUG INEFFECTIVE [None]
  - LIVER FUNCTION TEST ABNORMAL [None]
  - LIVER TRANSPLANT REJECTION [None]
